FAERS Safety Report 10152593 (Version 2)
Quarter: 2014Q2

REPORT INFORMATION
  Report Type: Spontaneous
  Country: FR (occurrence: FR)
  Receive Date: 20140505
  Receipt Date: 20140618
  Transmission Date: 20141212
  Serious: Yes (Death)
  Sender: FDA-Public Use
  Company Number: FR-PFIZER INC-2014118592

PATIENT
  Age: 83 Year
  Sex: Female

DRUGS (6)
  1. TAHOR [Suspect]
     Dosage: 10 MG, 1X/DAY
  2. ASPEGIC [Concomitant]
  3. DISCOTRINE [Concomitant]
  4. MOLSIDOMINE [Concomitant]
  5. DONORMYL [Concomitant]
  6. DIPROSONE [Concomitant]

REACTIONS (1)
  - Death [Fatal]
